FAERS Safety Report 9999525 (Version 1)
Quarter: 2014Q1

REPORT INFORMATION
  Report Type: Spontaneous
  Country: CA (occurrence: CA)
  Receive Date: 20140312
  Receipt Date: 20140312
  Transmission Date: 20141002
  Serious: Yes (Other)
  Sender: FDA-Public Use
  Company Number: CA-B.I. PHARMACEUTICALS,INC./RIDGEFIELD-2014-BI-09848CN

PATIENT
  Age: 54 Year
  Sex: Female

DRUGS (5)
  1. SPIRIVA [Suspect]
     Indication: PRODUCT USED FOR UNKNOWN INDICATION
     Dosage: 1 ANZ
     Route: 055
  2. ADVAIR [Concomitant]
     Route: 065
  3. PERINDOPRIL [Concomitant]
     Route: 065
  4. RANITIDINE [Concomitant]
     Route: 065
  5. SALBUTAMOL [Concomitant]
     Route: 065

REACTIONS (3)
  - Dry skin [Recovered/Resolved]
  - Pallor [Recovered/Resolved]
  - Rash erythematous [Recovered/Resolved]
